FAERS Safety Report 5296278-5 (Version None)
Quarter: 2007Q2

REPORT INFORMATION
  Report Type: 
  Country: None (occurrence: None)
  Receive Date: 20070413
  Receipt Date: 20070402
  Transmission Date: 20071010
  Serious: Yes (Other)
  Sender: FDA-Public Use
  Company Number: PHEH2007US03856

PATIENT
  Sex: Female

DRUGS (4)
  1. PRAVACHOL [Concomitant]
     Dosage: UNK, UNK
  2. FUROSEMIDE [Concomitant]
     Dosage: UNK, UNK
  3. DIURETICS [Concomitant]
     Dosage: UNK, UNK
  4. ZELNORM [Suspect]
     Indication: INTESTINAL FUNCTIONAL DISORDER
     Dosage: 6 MG, BID
     Route: 048
     Dates: start: 20050101, end: 20070301

REACTIONS (2)
  - CARDIAC PACEMAKER INSERTION [None]
  - HYPERTENSION [None]
